FAERS Safety Report 7015165-5 (Version None)
Quarter: 2010Q3

REPORT INFORMATION
  Report Type: 
  Country: None (occurrence: None)
  Receive Date: 20100927
  Receipt Date: 20100419
  Transmission Date: 20110219
  Serious: No
  Sender: FDA-Public Use
  Company Number: US-ASTRAZENECA-2010SE04510

PATIENT
  Age: 66 Year
  Sex: Female
  Weight: 56.7 kg

DRUGS (1)
  1. ARIMIDEX [Suspect]
     Indication: BREAST CANCER
     Route: 048
     Dates: start: 20091201

REACTIONS (3)
  - DIARRHOEA [None]
  - HYPOTONIA [None]
  - WEIGHT DECREASED [None]
